FAERS Safety Report 8216680-9 (Version None)
Quarter: 2012Q1

REPORT INFORMATION
  Report Type: 
  Country: None (occurrence: None)
  Receive Date: 20120316
  Receipt Date: 20120312
  Transmission Date: 20120608
  Serious: No
  Sender: FDA-Public Use
  Company Number: US-PFIZER INC-2012045227

PATIENT
  Sex: Male

DRUGS (5)
  1. LOPID [Concomitant]
     Indication: DYSLIPIDAEMIA
     Dosage: 600 MG, 2X/DAY
     Dates: start: 20110301
  2. VIAGRA [Suspect]
     Indication: ERECTILE DYSFUNCTION
     Dosage: 100 MG, AS NEEDED
     Route: 048
     Dates: start: 20110311, end: 20120120
  3. PRILOSEC [Concomitant]
     Dosage: 20 MG, AS NEEDED
  4. HYZAAR [Concomitant]
     Indication: HYPERTENSION
     Dosage: 50/12.5
     Dates: start: 20110301
  5. ASPIRIN [Concomitant]
     Dosage: UNK

REACTIONS (1)
  - CYANOPSIA [None]
